FAERS Safety Report 9631270 (Version 4)
Quarter: 2013Q4

REPORT INFORMATION
  Report Type: Spontaneous
  Country: JP (occurrence: JP)
  Receive Date: 20131018
  Receipt Date: 20131108
  Transmission Date: 20140711
  Serious: Yes (Hospitalization)
  Sender: FDA-Public Use
  Company Number: JP-JNJFOC-20131007665

PATIENT
  Age: 14 Month
  Sex: Female

DRUGS (1)
  1. REMICADE [Suspect]
     Indication: KAWASAKI^S DISEASE
     Route: 042

REACTIONS (2)
  - Dermatitis psoriasiform [Recovered/Resolved]
  - Off label use [Unknown]
